FAERS Safety Report 9425233 (Version 1)
Quarter: 2013Q3

REPORT INFORMATION
  Report Type: Spontaneous
  Country: US (occurrence: US)
  Receive Date: 20130729
  Receipt Date: 20130729
  Transmission Date: 20140515
  Serious: Yes (Hospitalization)
  Sender: FDA-Public Use
  Company Number: US-BAXTER-2013BAX028711

PATIENT
  Age: 65 Year
  Sex: Male

DRUGS (2)
  1. DIANEAL LOW CALCIUM [Suspect]
     Indication: PERITONEAL DIALYSIS
     Route: 033
     Dates: end: 2013
  2. DIANEAL LOW CALCIUM [Suspect]
     Route: 033
     Dates: start: 201307

REACTIONS (3)
  - Localised infection [Not Recovered/Not Resolved]
  - Post procedural complication [Unknown]
  - Convulsion [Not Recovered/Not Resolved]
